FAERS Safety Report 8231122-5 (Version None)
Quarter: 2012Q1

REPORT INFORMATION
  Report Type: 
  Country: None (occurrence: None)
  Receive Date: 20120322
  Receipt Date: 20120322
  Transmission Date: 20120608
  Serious: Yes (Other)
  Sender: FDA-Public Use
  Company Number: None

PATIENT
  Age: 39 Year
  Sex: Female
  Weight: 81.646 kg

DRUGS (1)
  1. BENZONATATE [Suspect]
     Indication: COUGH
     Dosage: 100 MG CAPSULES
     Route: 048
     Dates: start: 20120320, end: 20120320

REACTIONS (3)
  - CHEST PAIN [None]
  - DYSPNOEA [None]
  - FEELING HOT [None]
